FAERS Safety Report 4742514-0 (Version None)
Quarter: 2005Q3

REPORT INFORMATION
  Report Type: 
  Country: None (occurrence: None)
  Receive Date: 20050808
  Receipt Date: 20050725
  Transmission Date: 20060218
  Serious: Yes (Other)
  Sender: FDA-Public Use
  Company Number: USA041184629

PATIENT
  Age: 79 Year
  Sex: Female
  Weight: 41 kg

DRUGS (4)
  1. FORTEO [Suspect]
     Indication: BONE DISORDER
     Dates: start: 20040901
  2. ALLERGY SHOT [Concomitant]
  3. COUGH SYRUP WITH CODEINE [Concomitant]
  4. VITAMINS [Concomitant]

REACTIONS (9)
  - ALOPECIA [None]
  - FATIGUE [None]
  - HEADACHE [None]
  - MIDDLE INSOMNIA [None]
  - MUSCLE SPASMS [None]
  - OCULAR VASCULAR DISORDER [None]
  - PAIN IN EXTREMITY [None]
  - PHARMACEUTICAL PRODUCT COMPLAINT [None]
  - STRESS [None]
